FAERS Safety Report 8301925-7 (Version None)
Quarter: 2012Q2

REPORT INFORMATION
  Report Type: 
  Country: None (occurrence: None)
  Receive Date: 20120420
  Receipt Date: 20120416
  Transmission Date: 20120825
  Serious: Yes (Hospitalization)
  Sender: FDA-Public Use
  Company Number: KR-ROCHE-1039711

PATIENT
  Sex: Female
  Weight: 48.7 kg

DRUGS (17)
  1. XELODA [Suspect]
     Route: 048
     Dates: end: 20120217
  2. XELODA [Suspect]
     Route: 048
     Dates: end: 20120331
  3. CISPLATIN [Suspect]
     Indication: GASTRIC CANCER
     Route: 042
     Dates: start: 20120114
  4. ARTEMISIA ASIATICA [Concomitant]
     Dates: start: 20120125
  5. THIOCTIC ACID [Concomitant]
     Dates: start: 20020510
  6. AVASTIN [Suspect]
     Indication: GASTRIC CANCER
     Route: 042
     Dates: start: 20120114
  7. XELODA [Suspect]
     Indication: GASTRIC CANCER
     Route: 048
     Dates: start: 20120114, end: 20120210
  8. DOCETAXEL [Suspect]
     Dosage: DOSE REDUCTION OF 25%
     Route: 042
  9. GLIMEPIRIDE [Concomitant]
     Dates: start: 20020510
  10. SUCRALFATE [Concomitant]
     Dates: start: 20120125
  11. MEGESTROL ACETATE [Concomitant]
     Dates: start: 20120114
  12. ATORVASTATIN [Concomitant]
     Dates: start: 20020510
  13. PIOGLITAZONE [Concomitant]
     Dates: start: 20020510
  14. METFORMIN HCL [Concomitant]
     Dates: start: 20020510
  15. XELODA [Suspect]
     Dosage: DOSE REDUCTION OF 50%.
     Route: 048
  16. DOCETAXEL [Suspect]
     Indication: GASTRIC CANCER
     Route: 042
     Dates: start: 20120114
  17. METOCLOPRAMIDE/PANCREATIN [Concomitant]
     Dates: start: 20120106

REACTIONS (2)
  - GASTROINTESTINAL PERFORATION [None]
  - FEBRILE NEUTROPENIA [None]
